FAERS Safety Report 23442447 (Version 1)
Quarter: 2024Q1

REPORT INFORMATION
  Report Type: Report from Study
  Country: BG (occurrence: BG)
  Receive Date: 20240125
  Receipt Date: 20240125
  Transmission Date: 20240410
  Serious: Yes (Other)
  Sender: FDA-Public Use
  Company Number: BG-SUN PHARMACEUTICAL INDUSTRIES LTD-2024R1-428555

PATIENT
  Age: 10 Year
  Sex: Female

DRUGS (5)
  1. METFORMIN [Suspect]
     Active Substance: METFORMIN HYDROCHLORIDE
     Indication: Diabetes mellitus
     Dosage: UNK (2000MG)
     Route: 065
  2. INSULIN NOS [Suspect]
     Active Substance: INSULIN NOS
     Indication: Diabetes mellitus
     Dosage: UNK (0.17U/KG/DAY)
     Route: 065
  3. UNSPECIFIED INGREDIENT [Concomitant]
     Active Substance: UNSPECIFIED INGREDIENT
     Indication: Diabetes mellitus
     Dosage: UNK (200MG)
     Route: 065
  4. sulfonyulurea [Concomitant]
     Indication: Diabetes mellitus
     Dosage: UNK (6MG)
     Route: 065
  5. UNSPECIFIED INGREDIENT [Concomitant]
     Active Substance: UNSPECIFIED INGREDIENT
     Indication: Diabetes mellitus
     Dosage: UNK (45MG)
     Route: 065

REACTIONS (8)
  - Menstruation irregular [Unknown]
  - Treatment noncompliance [Unknown]
  - Metabolic syndrome [Unknown]
  - Hepatic steatosis [Unknown]
  - Nephropathy [Unknown]
  - Hypertension [Unknown]
  - Pancreatitis necrotising [Unknown]
  - Peritonitis [Unknown]
